FAERS Safety Report 21926823 (Version 2)
Quarter: 2023Q2

REPORT INFORMATION
  Report Type: Report from Study
  Country: IL (occurrence: IL)
  Receive Date: 20230130
  Receipt Date: 20230511
  Transmission Date: 20230721
  Serious: Yes (Hospitalization)
  Sender: FDA-Public Use
  Company Number: IL-002147023-NVSC2023IL005764

PATIENT
  Age: 42 Year
  Sex: Female

DRUGS (1)
  1. KISQALI [Suspect]
     Active Substance: RIBOCICLIB
     Indication: Breast cancer metastatic
     Dosage: 600 MG, QD
     Route: 048
     Dates: start: 20221226

REACTIONS (5)
  - Concomitant disease aggravated [Recovering/Resolving]
  - Cough [Unknown]
  - Stomatitis [Not Recovered/Not Resolved]
  - Rash [Recovering/Resolving]
  - Drug ineffective [Unknown]

NARRATIVE: CASE EVENT DATE: 20230118
